FAERS Safety Report 24946022 (Version 3)
Quarter: 2025Q3

REPORT INFORMATION
  Report Type: Report from Study
  Country: EU (occurrence: EU)
  Receive Date: 20250209
  Receipt Date: 20250821
  Transmission Date: 20251020
  Serious: Yes (Death, Hospitalization, Other)
  Sender: ABBVIE
  Company Number: EU-JNJFOC-20250196234

PATIENT
  Age: 70 Year
  Sex: Female
  Weight: 76 kg

DRUGS (1)
  1. IBRUTINIB [Suspect]
     Active Substance: IBRUTINIB
     Indication: Mantle cell lymphoma
     Route: 048
     Dates: start: 20240626, end: 20240819

REACTIONS (6)
  - General physical health deterioration [Fatal]
  - Aspartate aminotransferase increased [Unknown]
  - Mantle cell lymphoma [Unknown]
  - Leukocytosis [Unknown]
  - Blood folate decreased [Recovered/Resolved]
  - Thrombocytopenia [Recovered/Resolved]

NARRATIVE: CASE EVENT DATE: 20240731
